FAERS Safety Report 22256210 (Version 2)
Quarter: 2023Q2

REPORT INFORMATION
  Report Type: Report from Study
  Country: US (occurrence: US)
  Receive Date: 20230426
  Receipt Date: 20230501
  Transmission Date: 20230722
  Serious: Yes (Hospitalization)
  Sender: FDA-Public Use
  Company Number: US-MYLANLABS-2023M1043144

PATIENT
  Sex: Male

DRUGS (1)
  1. CLOZAPINE [Suspect]
     Active Substance: CLOZAPINE
     Indication: Schizophrenia
     Dosage: 4 DOSAGE FORM, QD ( 200MG TABLETS AND TAKES 4 TABLETS AT BEDTIME)
     Route: 048

REACTIONS (1)
  - Dyspnoea [Unknown]
